FAERS Safety Report 6718355-1 (Version None)
Quarter: 2010Q2

REPORT INFORMATION
  Report Type: 
  Country: None (occurrence: None)
  Receive Date: 20100505
  Receipt Date: 20100420
  Transmission Date: 20101027
  Serious: Yes (Other)
  Sender: FDA-Public Use
  Company Number: AUR-APU-2010-01133

PATIENT
  Age: 55 Year
  Sex: Male

DRUGS (3)
  1. FINASTERIDE [Suspect]
     Indication: PROSTATIC DISORDER
     Dosage: 5MG, DAILY
  2. HYTRIN [Concomitant]
  3. SAW PALMETTO [Concomitant]

REACTIONS (2)
  - ANAL HAEMORRHAGE [None]
  - ANAL INFLAMMATION [None]
